FAERS Safety Report 10530325 (Version 1)
Quarter: 2014Q4

REPORT INFORMATION
  Report Type: Spontaneous
  Country: US (occurrence: None)
  Receive Date: 20141020
  Receipt Date: 20141020
  Transmission Date: 20150528
  Serious: Yes (Life-Threatening, Hospitalization)
  Sender: FDA-Public Use
  Company Number: None

PATIENT
  Age: 61 Year
  Sex: Female
  Weight: 58.97 kg

DRUGS (6)
  1. LYRICA [Suspect]
     Active Substance: PREGABALIN
     Indication: PAIN
     Route: 048
  2. LYRICA [Suspect]
     Active Substance: PREGABALIN
     Indication: ARACHNOIDITIS
     Route: 048
  3. LYRICA [Suspect]
     Active Substance: PREGABALIN
     Indication: FRACTURE
     Route: 048
  4. ESTRADIOL. [Concomitant]
     Active Substance: ESTRADIOL
  5. TRAMADOL [Concomitant]
     Active Substance: TRAMADOL
  6. VERAPAMIL [Concomitant]
     Active Substance: VERAPAMIL HYDROCHLORIDE

REACTIONS (6)
  - Suicidal ideation [None]
  - Paranoia [None]
  - Depression [None]
  - Amnesia [None]
  - Agitation [None]
  - Drug withdrawal syndrome [None]

NARRATIVE: CASE EVENT DATE: 20141013
